FAERS Safety Report 14367931 (Version 1)
Quarter: 2018Q1

REPORT INFORMATION
  Report Type: Spontaneous
  Country: US (occurrence: US)
  Receive Date: 20180109
  Receipt Date: 20180109
  Transmission Date: 20180509
  Serious: No
  Sender: FDA-Public Use
  Company Number: US-ALLERGAN-1725516US

PATIENT
  Age: 51 Year
  Sex: Female
  Weight: 83.9 kg

DRUGS (2)
  1. DALVANCE [Suspect]
     Active Substance: DALBAVANCIN
     Indication: STAPHYLOCOCCAL INFECTION
     Dosage: 500 MG, SINGLE
     Route: 042
     Dates: start: 20170616, end: 20170616
  2. DALVANCE [Suspect]
     Active Substance: DALBAVANCIN
     Indication: STREPTOCOCCAL INFECTION
     Dosage: 1000 MG, SINGLE
     Route: 042
     Dates: start: 20170609, end: 20170609

REACTIONS (3)
  - Gingival bleeding [Recovered/Resolved]
  - Urine abnormality [Recovered/Resolved]
  - Diarrhoea [Recovered/Resolved]

NARRATIVE: CASE EVENT DATE: 201706
